FAERS Safety Report 10056010 (Version 5)
Quarter: 2014Q3

REPORT INFORMATION
  Report Type: Spontaneous
  Country: US (occurrence: US)
  Receive Date: 20140403
  Receipt Date: 20140903
  Transmission Date: 20150326
  Serious: Yes (Hospitalization, Disabling, Other)
  Sender: FDA-Public Use
  Company Number: US-JNJFOC-20140400721

PATIENT
  Age: 62 Year
  Sex: Female
  Weight: 70.76 kg

DRUGS (18)
  1. AMITRIPTYLINE [Concomitant]
     Active Substance: AMITRIPTYLINE
     Route: 065
  2. NEXIUM [Concomitant]
     Active Substance: ESOMEPRAZOLE MAGNESIUM
     Indication: GASTRIC DISORDER
     Route: 048
     Dates: start: 201312
  3. OMEGA 3-6-9 [Concomitant]
     Indication: NUTRITIONAL SUPPLEMENTATION
     Route: 065
  4. ALPRAZOLAM. [Concomitant]
     Active Substance: ALPRAZOLAM
     Indication: ANTIDEPRESSANT THERAPY
     Route: 048
  5. XARELTO [Suspect]
     Active Substance: RIVAROXABAN
     Indication: THROMBOSIS
     Route: 048
     Dates: start: 20131209, end: 201402
  6. METOPROLOL SUCCINATE. [Concomitant]
     Active Substance: METOPROLOL SUCCINATE
     Indication: CARDIAC DISORDER
     Route: 048
  7. LEXAPRO [Concomitant]
     Active Substance: ESCITALOPRAM OXALATE
     Route: 065
  8. CITALOPRAM [Concomitant]
     Active Substance: CITALOPRAM HYDROBROMIDE
     Indication: ANXIETY
     Route: 065
  9. CALCIUM [Concomitant]
     Active Substance: CALCIUM
     Route: 065
  10. ANTIPLATELET [Concomitant]
     Active Substance: UNSPECIFIED INGREDIENT
     Dosage: 1 TO 2
     Route: 065
  11. OMEPRAZOLE. [Concomitant]
     Active Substance: OMEPRAZOLE
     Indication: GASTRIC DISORDER
     Route: 065
  12. HYOSCYAMINE [Concomitant]
     Active Substance: HYOSCYAMINE
     Indication: PANIC DISORDER
     Dosage: UNDER TONGUE
     Route: 065
  13. HYDROCODONE/APAP [Concomitant]
     Active Substance: ACETAMINOPHEN\HYDROCODONE
     Route: 065
  14. LOVASTATIN. [Concomitant]
     Active Substance: LOVASTATIN
     Indication: BLOOD CHOLESTEROL
     Route: 048
     Dates: start: 201402
  15. GABAPENTIN. [Concomitant]
     Active Substance: GABAPENTIN
     Indication: FIBROMYALGIA
     Route: 065
  16. HYOSCYAMINE [Concomitant]
     Active Substance: HYOSCYAMINE
     Indication: ABDOMINAL PAIN UPPER
     Dosage: 1-2 TABLETS EVERY 4-6 HOURS AS NEEDED
     Route: 060
  17. VITAMIN D [Concomitant]
     Active Substance: CHOLECALCIFEROL
     Route: 065
  18. DIAZEPAM. [Concomitant]
     Active Substance: DIAZEPAM
     Route: 065

REACTIONS (15)
  - Myalgia [Unknown]
  - Memory impairment [Recovering/Resolving]
  - Dizziness [Unknown]
  - Motor dysfunction [Recovering/Resolving]
  - Confusional state [Recovering/Resolving]
  - Inappropriate schedule of drug administration [Unknown]
  - Angina pectoris [Unknown]
  - Pulmonary thrombosis [Unknown]
  - Pain [Unknown]
  - Abdominal pain upper [Unknown]
  - Fall [Unknown]
  - Adverse event [Unknown]
  - Thrombosis [Unknown]
  - Bone pain [Unknown]
  - Abnormal loss of weight [Unknown]

NARRATIVE: CASE EVENT DATE: 201312
